FAERS Safety Report 16630067 (Version 1)
Quarter: 2019Q3

REPORT INFORMATION
  Report Type: Spontaneous
  Country: DK (occurrence: DK)
  Receive Date: 20190725
  Receipt Date: 20190725
  Transmission Date: 20191004
  Serious: Yes (Death, Hospitalization, Other)
  Sender: FDA-Public Use
  Company Number: DK-TAKEDA-2019TUS045063

PATIENT
  Age: 69 Year
  Sex: Male

DRUGS (1)
  1. ENTYVIO [Suspect]
     Active Substance: VEDOLIZUMAB
     Indication: COLITIS ULCERATIVE
     Dosage: 300 MILLIGRAM
     Route: 065
     Dates: start: 20150319, end: 201710

REACTIONS (17)
  - Acute myeloid leukaemia [Fatal]
  - Peripheral swelling [Fatal]
  - Leukopenia [Fatal]
  - Weight decreased [Fatal]
  - Dyspnoea [Fatal]
  - Pyrexia [Fatal]
  - Myalgia [Fatal]
  - Headache [Fatal]
  - Arthralgia [Fatal]
  - Pain in extremity [Fatal]
  - Skin haemorrhage [Fatal]
  - Testicular swelling [Fatal]
  - Myalgia [Fatal]
  - Decreased appetite [Fatal]
  - Arthralgia [Fatal]
  - Lymphadenopathy [Fatal]
  - Night sweats [Fatal]

NARRATIVE: CASE EVENT DATE: 201503
